FAERS Safety Report 7775732-8 (Version None)
Quarter: 2011Q3

REPORT INFORMATION
  Report Type: 
  Country: None (occurrence: None)
  Receive Date: 20110923
  Receipt Date: 20110916
  Transmission Date: 20111222
  Serious: Yes (Hospitalization)
  Sender: FDA-Public Use
  Company Number: SE-GLAXOSMITHKLINE-B0749698A

PATIENT
  Sex: Female

DRUGS (4)
  1. VALTREX [Suspect]
     Indication: ERYSIPELAS
     Dosage: 3G PER DAY
     Route: 048
     Dates: start: 20110719, end: 20110720
  2. METHOTREXATE [Concomitant]
  3. WARFARIN SODIUM [Concomitant]
  4. PREDNISOLONE [Concomitant]

REACTIONS (4)
  - NAUSEA [None]
  - REGURGITATION [None]
  - VOMITING [None]
  - DIZZINESS [None]
